FAERS Safety Report 21223079 (Version 4)
Quarter: 2022Q4

REPORT INFORMATION
  Report Type: Spontaneous
  Country: US (occurrence: US)
  Receive Date: 20220817
  Receipt Date: 20221206
  Transmission Date: 20230112
  Serious: Yes (Hospitalization)
  Sender: FDA-Public Use
  Company Number: US-BRISTOL-MYERS SQUIBB COMPANY-2022-091478

PATIENT
  Age: 68 Year
  Sex: Male
  Weight: 93.0 kg

DRUGS (2)
  1. POMALYST [Suspect]
     Active Substance: POMALIDOMIDE
     Indication: Plasma cell myeloma
     Dosage: FREQ: DAILY DAYS 1-21, EVERY 28 DAYS
     Route: 048
     Dates: start: 20210922
  2. POMALYST [Suspect]
     Active Substance: POMALIDOMIDE
     Dosage: FREQ: DAILY DAYS 1-21, EVERY 28 DAYS
     Route: 048
     Dates: start: 20220615

REACTIONS (3)
  - Respiratory disorder [Recovered/Resolved]
  - Pyrexia [Unknown]
  - Nasopharyngitis [Not Recovered/Not Resolved]

NARRATIVE: CASE EVENT DATE: 20221123
